FAERS Safety Report 19485904 (Version 2)
Quarter: 2021Q3

REPORT INFORMATION
  Report Type: Spontaneous
  Country: CN (occurrence: CN)
  Receive Date: 20210702
  Receipt Date: 20210716
  Transmission Date: 20211014
  Serious: Yes (Hospitalization, Other)
  Sender: FDA-Public Use
  Company Number: CN-PFIZER INC-2021747778

PATIENT
  Age: 52 Year
  Sex: Male

DRUGS (2)
  1. NAB?PACLITAXEL [Suspect]
     Active Substance: PACLITAXEL
     Indication: LARGE CELL LUNG CANCER STAGE IV
     Dosage: 200 MG, CYCLIC: D1, Q3W
     Dates: start: 20190730
  2. CAMRELIZUMAB [Suspect]
     Active Substance: CAMRELIZUMAB
     Indication: LARGE CELL LUNG CANCER STAGE IV
     Dosage: 200 MG, CYCLIC: D1, Q3W
     Dates: start: 20190730

REACTIONS (1)
  - Skin hyperplasia [Recovering/Resolving]

NARRATIVE: CASE EVENT DATE: 2019
